FAERS Safety Report 17569770 (Version 3)
Quarter: 2020Q3

REPORT INFORMATION
  Report Type: Report from Study
  Country: None (occurrence: US)
  Receive Date: 20200323
  Receipt Date: 20200712
  Transmission Date: 20201102
  Serious: Yes (Hospitalization, Other)
  Sender: FDA-Public Use
  Company Number: US-ABBVIE-20K-163-3331280-00

PATIENT
  Sex: Female
  Weight: 129.84 kg

DRUGS (12)
  1. SPIRONOLACTONE. [Concomitant]
     Active Substance: SPIRONOLACTONE
     Indication: HIDRADENITIS
  2. SINGULAIR [Concomitant]
     Active Substance: MONTELUKAST SODIUM
     Indication: HYPERSENSITIVITY
  3. EPITOL [Concomitant]
     Active Substance: CARBAMAZEPINE
     Indication: MOOD ALTERED
  4. HUMIRA [Suspect]
     Active Substance: ADALIMUMAB
     Indication: HIDRADENITIS
     Dosage: CITRATE FREE
     Route: 058
     Dates: start: 20200115, end: 20200303
  5. PROZAC [Concomitant]
     Active Substance: FLUOXETINE HYDROCHLORIDE
     Indication: DEPRESSION
  6. TOPAMAX [Concomitant]
     Active Substance: TOPIRAMATE
     Indication: IDIOPATHIC INTRACRANIAL HYPERTENSION
  7. SYNTHROID [Concomitant]
     Active Substance: LEVOTHYROXINE SODIUM
     Indication: HYPOTHYROIDISM
  8. EPITOL [Concomitant]
     Active Substance: CARBAMAZEPINE
     Indication: IDIOPATHIC INTRACRANIAL HYPERTENSION
  9. CLARINEX [Concomitant]
     Active Substance: DESLORATADINE
     Indication: HYPERSENSITIVITY
  10. CLARINEX [Concomitant]
     Active Substance: DESLORATADINE
     Indication: MOOD ALTERED
  11. TOPAMAX [Concomitant]
     Active Substance: TOPIRAMATE
     Indication: MOOD ALTERED
  12. CYTOMEL [Concomitant]
     Active Substance: LIOTHYRONINE SODIUM
     Indication: HYPOTHYROIDISM

REACTIONS (5)
  - Visual impairment [Recovering/Resolving]
  - Hydrocephalus [Recovering/Resolving]
  - Gait inability [Recovering/Resolving]
  - Hidradenitis [Not Recovered/Not Resolved]
  - Idiopathic intracranial hypertension [Recovering/Resolving]

NARRATIVE: CASE EVENT DATE: 2020
